FAERS Safety Report 7101777-7 (Version None)
Quarter: 2010Q4

REPORT INFORMATION
  Report Type: 
  Country: None (occurrence: None)
  Receive Date: 20101115
  Receipt Date: 20101104
  Transmission Date: 20110411
  Serious: Yes (Life-Threatening)
  Sender: FDA-Public Use
  Company Number: SI-JNJFOC-20101104099

PATIENT
  Sex: Female

DRUGS (3)
  1. REMICADE [Suspect]
     Indication: FELTY'S SYNDROME
     Route: 042
  2. METHOTREXATE [Concomitant]
     Route: 048
  3. MEDROL [Concomitant]
     Route: 048

REACTIONS (5)
  - BLOOD PRESSURE DECREASED [None]
  - CYANOSIS [None]
  - DYSPNOEA [None]
  - INFUSION RELATED REACTION [None]
  - OXYGEN SATURATION DECREASED [None]
